FAERS Safety Report 15634356 (Version 1)
Quarter: 2018Q4

REPORT INFORMATION
  Report Type: Spontaneous
  Country: US (occurrence: US)
  Receive Date: 20181119
  Receipt Date: 20181119
  Transmission Date: 20190205
  Serious: No
  Sender: FDA-Public Use
  Company Number: US-PFIZER INC-2018456589

PATIENT
  Sex: Male

DRUGS (1)
  1. LEVOXYL [Suspect]
     Active Substance: LEVOTHYROXINE SODIUM
     Indication: HYPOTHYROIDISM
     Dosage: 25 UG, 1X/DAY(IN THE MORNING)

REACTIONS (5)
  - Chest pain [Unknown]
  - Feeling cold [Unknown]
  - Hot flush [Unknown]
  - Palpitations [Unknown]
  - Sleep apnoea syndrome [Unknown]
